FAERS Safety Report 11520706 (Version 2)
Quarter: 2015Q4

REPORT INFORMATION
  Report Type: Spontaneous
  Country: US (occurrence: US)
  Receive Date: 20150918
  Receipt Date: 20151014
  Transmission Date: 20160304
  Serious: No
  Sender: FDA-Public Use
  Company Number: US-PFIZER INC-2015303083

PATIENT
  Age: 76 Year
  Sex: Female
  Weight: 82 kg

DRUGS (4)
  1. LISINOPRIL. [Concomitant]
     Active Substance: LISINOPRIL
     Indication: HYPERTENSION
     Dosage: 20 MG, UNK
  2. LYRICA [Suspect]
     Active Substance: PREGABALIN
     Indication: LIMB DISCOMFORT
     Dosage: 75 MG, 3X/DAY
     Route: 048
     Dates: end: 2015
  3. CARVEDILOL. [Concomitant]
     Active Substance: CARVEDILOL
     Indication: HYPERTENSION
     Dosage: 5 MG, 1X/DAY
  4. NORVASC [Concomitant]
     Active Substance: AMLODIPINE BESYLATE
     Indication: HYPERTENSION
     Dosage: 5 MG, UNK

REACTIONS (3)
  - Dyskinesia [Unknown]
  - Asthma [Unknown]
  - Feeling hot [Unknown]

NARRATIVE: CASE EVENT DATE: 20150907
